FAERS Safety Report 16598989 (Version 6)
Quarter: 2022Q1

REPORT INFORMATION
  Report Type: Spontaneous
  Country: US (occurrence: US)
  Receive Date: 20190719
  Receipt Date: 20220311
  Transmission Date: 20220423
  Serious: No
  Sender: FDA-Public Use
  Company Number: US-SA-2019SA194128

PATIENT
  Age: 63 Year
  Sex: Male

DRUGS (2)
  1. DUPIXENT [Suspect]
     Active Substance: DUPILUMAB
     Indication: Dermatitis atopic
     Dosage: 300 MG, QOW
     Route: 058
     Dates: start: 20190508
  2. REVLIMID [Suspect]
     Active Substance: LENALIDOMIDE

REACTIONS (17)
  - Swelling of eyelid [Recovered/Resolved]
  - Erythema of eyelid [Recovered/Resolved]
  - Dysgeusia [Unknown]
  - Abdominal discomfort [Unknown]
  - Loss of personal independence in daily activities [Not Recovered/Not Resolved]
  - Fatigue [Not Recovered/Not Resolved]
  - Oral mucosal erythema [Not Recovered/Not Resolved]
  - Mouth ulceration [Not Recovered/Not Resolved]
  - Pain [Not Recovered/Not Resolved]
  - Diarrhoea [Not Recovered/Not Resolved]
  - Eye swelling [Unknown]
  - Rash [Not Recovered/Not Resolved]
  - Foreign body sensation in eyes [Unknown]
  - Muscle spasms [Unknown]
  - Hypersensitivity [Unknown]
  - Drug ineffective [Unknown]
  - Arthralgia [Unknown]

NARRATIVE: CASE EVENT DATE: 20190101
